FAERS Safety Report 19129768 (Version 3)
Quarter: 2021Q2

REPORT INFORMATION
  Report Type: Spontaneous
  Country: US (occurrence: US)
  Receive Date: 20210413
  Receipt Date: 20210506
  Transmission Date: 20210717
  Serious: Yes (Other)
  Sender: FDA-Public Use
  Company Number: US-IPSEN BIOPHARMACEUTICALS, INC.-2021-09196

PATIENT
  Age: 55 Year
  Sex: Male
  Weight: 108 kg

DRUGS (1)
  1. SOMATULINE DEPOT [Suspect]
     Active Substance: LANREOTIDE ACETATE
     Indication: NEUROENDOCRINE CARCINOMA METASTATIC
     Route: 065
     Dates: start: 201601

REACTIONS (5)
  - Injection site granuloma [Unknown]
  - Injection site erythema [Unknown]
  - Scar [Unknown]
  - Product administration error [Unknown]
  - Postoperative wound complication [Unknown]

NARRATIVE: CASE EVENT DATE: 20210409
